FAERS Safety Report 7661928-2 (Version None)
Quarter: 2011Q3

REPORT INFORMATION
  Report Type: 
  Country: None (occurrence: None)
  Receive Date: 20110805
  Receipt Date: 20101215
  Transmission Date: 20111222
  Serious: No
  Sender: FDA-Public Use
  Company Number: US-ABBOTT-10P-163-0691569-00

PATIENT
  Sex: Male
  Weight: 90.8 kg

DRUGS (1)
  1. NIASPAN [Suspect]
     Indication: BLOOD TRIGLYCERIDES INCREASED
     Dosage: 500 MG DAILY AT BEDTIME
     Dates: start: 20101101, end: 20101211

REACTIONS (3)
  - SKIN BURNING SENSATION [None]
  - FLUSHING [None]
  - PALPITATIONS [None]
